FAERS Safety Report 9061399 (Version 1)
Quarter: 2013Q1

REPORT INFORMATION
  Report Type: Spontaneous
  Country: US (occurrence: None)
  Receive Date: 20130118
  Receipt Date: 20130118
  Transmission Date: 20140127
  Serious: Yes (Hospitalization)
  Sender: FDA-Public Use
  Company Number: DSU-2013-00378

PATIENT
  Age: 66 Year
  Sex: Female

DRUGS (3)
  1. BENICAR [Suspect]
     Indication: HYPERTENSION
     Dosage: (20 MG QD)
     Route: 048
     Dates: start: 2010
  2. PREVACID [Concomitant]
  3. METOPROLO L(METOPROLOL)(METOPROLOL) [Concomitant]

REACTIONS (6)
  - Knee operation [None]
  - Kidney infection [None]
  - Back pain [None]
  - Local swelling [None]
  - Joint swelling [None]
  - Local swelling [None]
